FAERS Safety Report 22319567 (Version 1)
Quarter: 2023Q2

REPORT INFORMATION
  Report Type: Spontaneous
  Country: JP (occurrence: JP)
  Receive Date: 20230515
  Receipt Date: 20230515
  Transmission Date: 20230722
  Serious: Yes (Other)
  Sender: FDA-Public Use
  Company Number: JP-OTSUKA-2023_012277

PATIENT
  Age: 14 Year

DRUGS (1)
  1. REXULTI [Suspect]
     Active Substance: BREXPIPRAZOLE
     Indication: Product used for unknown indication
     Dosage: 1MG, UNK
     Route: 048

REACTIONS (2)
  - Cushing^s syndrome [Unknown]
  - Product administered to patient of inappropriate age [Unknown]
